FAERS Safety Report 17224589 (Version 2)
Quarter: 2020Q1

REPORT INFORMATION
  Report Type: Spontaneous
  Country: PL (occurrence: PL)
  Receive Date: 20200102
  Receipt Date: 20200201
  Transmission Date: 20200409
  Serious: Yes (Hospitalization, Other)
  Sender: FDA-Public Use
  Company Number: PL-MYLANLABS-2019M1131385

PATIENT
  Age: 60 Year
  Sex: Female

DRUGS (2)
  1. FENTANYL. [Suspect]
     Active Substance: FENTANYL
     Indication: PRODUCT USED FOR UNKNOWN INDICATION
     Dosage: 0.02 MILLIGRAM, UNK
     Route: 065
  2. MARCAINE SPINAL HEAVY              /00330102/ [Suspect]
     Active Substance: BUPIVACAINE HYDROCHLORIDE
     Indication: SPINAL ANAESTHESIA
     Dosage: 3.6 MILLILITER
     Route: 065
     Dates: start: 20190912

REACTIONS (1)
  - Drug ineffective [Unknown]
